FAERS Safety Report 21159355 (Version 2)
Quarter: 2022Q3

REPORT INFORMATION
  Report Type: Spontaneous
  Country: US (occurrence: None)
  Receive Date: 20220802
  Receipt Date: 20220810
  Transmission Date: 20221027
  Serious: No
  Sender: FDA-Public Use
  Company Number: US-ROCHE-3145793

PATIENT
  Age: 30 Year
  Sex: Female

DRUGS (1)
  1. OCREVUS [Suspect]
     Active Substance: OCRELIZUMAB
     Indication: Product used for unknown indication
     Route: 065

REACTIONS (5)
  - Gastroenteritis [Unknown]
  - Clostridium test positive [Unknown]
  - Maternal exposure during pregnancy [Unknown]
  - Blood immunoglobulin G decreased [Recovered/Resolved]
  - Pain [Not Recovered/Not Resolved]
